FAERS Safety Report 15468155 (Version 2)
Quarter: 2018Q4

REPORT INFORMATION
  Report Type: Spontaneous
  Country: PT (occurrence: PT)
  Receive Date: 20181005
  Receipt Date: 20181109
  Transmission Date: 20190204
  Serious: Yes (Other)
  Sender: FDA-Public Use
  Company Number: PT-BAUSCH-BL-2018-026737

PATIENT
  Age: 80 Year
  Sex: Female

DRUGS (6)
  1. PREDNISOLONE. [Suspect]
     Active Substance: PREDNISOLONE
     Dosage: INCREASED TO 0.5 MG/KG
     Route: 065
  2. PREDNISOLONE. [Suspect]
     Active Substance: PREDNISOLONE
     Indication: MYOPATHY
     Dosage: INITIALLY, 1 MG/KG/DAY
     Route: 065
  3. IMMUNOGLOBULIN NOS [Concomitant]
     Active Substance: IMMUNE GLOBULIN NOS
     Indication: MYOPATHY
     Dosage: 5 DAYS EVERY THREE MONTHS
     Route: 042
     Dates: start: 201711
  4. PREDNISOLONE. [Suspect]
     Active Substance: PREDNISOLONE
     Dosage: 7.5-10MG
     Route: 065
     Dates: end: 201311
  5. PREDNISOLONE. [Suspect]
     Active Substance: PREDNISOLONE
     Dosage: LOWER THE PDN DOSE TO 5 MG AGAIN AND MAINTAINED
     Route: 065
  6. METHOTREXAT [Suspect]
     Active Substance: METHOTREXATE
     Indication: MYOPATHY
     Dosage: MAXIMUM DOSE OF 25MG / WEEK
     Route: 065

REACTIONS (1)
  - Pancytopenia [Recovered/Resolved]

NARRATIVE: CASE EVENT DATE: 201612
